FAERS Safety Report 10977550 (Version 1)
Quarter: 2015Q2

REPORT INFORMATION
  Report Type: Spontaneous
  Country: US (occurrence: None)
  Receive Date: 20150401
  Receipt Date: 20150401
  Transmission Date: 20150821
  Serious: No
  Sender: FDA-Public Use
  Company Number: None

PATIENT
  Age: 58 Year
  Sex: Female
  Weight: 54.43 kg

DRUGS (1)
  1. ESZOPICLONE. [Suspect]
     Active Substance: ESZOPICLONE
     Indication: INSOMNIA
     Dosage: /1 PILL
     Route: 048
     Dates: start: 20141217, end: 20150320

REACTIONS (10)
  - Sleep terror [None]
  - Nightmare [None]
  - Stupor [None]
  - Poor quality sleep [None]
  - Hyperhidrosis [None]
  - Product substitution issue [None]
  - Palpitations [None]
  - Fatigue [None]
  - Sedation [None]
  - Headache [None]

NARRATIVE: CASE EVENT DATE: 20141217
